FAERS Safety Report 6928017-3 (Version None)
Quarter: 2010Q3

REPORT INFORMATION
  Report Type: 
  Country: None (occurrence: None)
  Receive Date: 20100817
  Receipt Date: 20100803
  Transmission Date: 20110219
  Serious: Yes (Hospitalization, Other)
  Sender: FDA-Public Use
  Company Number: US-ELI_LILLY_AND_COMPANY-US201008001405

PATIENT
  Age: 54 Year
  Sex: Female

DRUGS (2)
  1. EFFIENT [Suspect]
     Dosage: 1 D/F, LOADING DOSE
  2. EFFIENT [Suspect]
     Dosage: 1 D/F, MAINTENANCE DOSE

REACTIONS (1)
  - MYOCARDIAL INFARCTION [None]
